FAERS Safety Report 6167520-3 (Version None)
Quarter: 2009Q2

REPORT INFORMATION
  Report Type: 
  Country: None (occurrence: None)
  Receive Date: 20090424
  Receipt Date: 20080408
  Transmission Date: 20091009
  Serious: No
  Sender: FDA-Public Use
  Company Number: A0721609A

PATIENT
  Sex: Female

DRUGS (1)
  1. FLONASE [Suspect]
     Route: 045

REACTIONS (1)
  - EPISTAXIS [None]
